FAERS Safety Report 4996106-9 (Version None)
Quarter: 2006Q2

REPORT INFORMATION
  Report Type: 
  Country: None (occurrence: None)
  Receive Date: 20060504
  Receipt Date: 20060418
  Transmission Date: 20061013
  Serious: Yes (Hospitalization)
  Sender: FDA-Public Use
  Company Number: DSA_28080_2006

PATIENT
  Age: 84 Year
  Sex: Male

DRUGS (8)
  1. ENALAPRIL MALEATE AND HYDROCHLOROTHIAZIDE [Suspect]
     Indication: HYPERTENSION
     Dosage: 1 TAB QD PO
     Route: 048
     Dates: start: 20010101, end: 20060401
  2. TRIMETAZIDINE HYDROCHLORIDE [Concomitant]
  3. ETIFOXINE HCL [Concomitant]
  4. ZOPICLONE [Concomitant]
  5. LACTULOSE [Concomitant]
  6. ASPIRIN LYSINE [Concomitant]
  7. SMECTITE + VANILLA [Concomitant]
  8. PHLOROGLUCINOL + TRIMETHYLPHLOROGLUCIN [Concomitant]

REACTIONS (2)
  - LYMPHOMA [None]
  - PYREXIA [None]
